FAERS Safety Report 5401500-8 (Version None)
Quarter: 2007Q3

REPORT INFORMATION
  Report Type: 
  Country: None (occurrence: None)
  Receive Date: 20070731
  Receipt Date: 20070302
  Transmission Date: 20080115
  Serious: No
  Sender: FDA-Public Use
  Company Number: A0641583A

PATIENT
  Age: 90 Year
  Sex: Female

DRUGS (4)
  1. DYAZIDE [Suspect]
     Indication: HYPERTENSION
     Dosage: 10MG PER DAY
     Route: 048
  2. PAXIL [Suspect]
     Indication: DEPRESSION
     Dosage: 10MG PER DAY
     Route: 048
  3. LIPITOR [Concomitant]
  4. XALATAN [Concomitant]

REACTIONS (3)
  - BALANCE DISORDER [None]
  - CONSTIPATION [None]
  - DIZZINESS [None]
